FAERS Safety Report 17157390 (Version 1)
Quarter: 2019Q4

REPORT INFORMATION
  Report Type: Spontaneous
  Country: MY (occurrence: MY)
  Receive Date: 20191216
  Receipt Date: 20191216
  Transmission Date: 20200122
  Serious: Yes (Other)
  Sender: FDA-Public Use
  Company Number: MY-BAYER-2019-221913

PATIENT
  Age: 18 Year
  Sex: Male

DRUGS (1)
  1. CIPROBAY 400/200 MG/ML [Suspect]
     Active Substance: CIPROFLOXACIN HYDROCHLORIDE
     Indication: WOUND INFECTION
     Dosage: 400 MG, BID
     Route: 042

REACTIONS (2)
  - Eye pruritus [Recovering/Resolving]
  - Eye swelling [Recovering/Resolving]
